FAERS Safety Report 9258879 (Version 2)
Quarter: 2013Q2

REPORT INFORMATION
  Report Type: Report from Study
  Country: US (occurrence: US)
  Receive Date: 20130426
  Receipt Date: 20130507
  Transmission Date: 20140414
  Serious: Yes (Hospitalization)
  Sender: FDA-Public Use
  Company Number: US-ACTELION-A-US2013-81686

PATIENT
  Age: 74 Year
  Sex: Female

DRUGS (13)
  1. VELETRI [Suspect]
     Indication: PULMONARY ARTERIAL HYPERTENSION
     Dosage: 22 NG/KG, PER MIN
     Route: 042
     Dates: start: 20101104
  2. COUMADIN [Concomitant]
     Dosage: 4 UNK, UNK
  3. FOSAMAX [Concomitant]
     Dosage: 70 MG, UNK
  4. TENORMIN [Concomitant]
     Dosage: 25 MG, UNK
  5. ESTRACE [Concomitant]
     Dosage: 0.5 MG, UNK
  6. CORTEF [Concomitant]
     Dosage: 10 MG, 1 1/2 TABLET DAILY
  7. ATIVAN [Concomitant]
     Dosage: 0.5 MG, OD
  8. MAGNESIUM OXIDE [Concomitant]
     Dosage: 400 MG, UNK
  9. PRILOSEC [Concomitant]
     Dosage: 20 MG, OD
  10. K-LOR [Concomitant]
     Dosage: 20 MEQ, UNK
  11. REVATIO [Concomitant]
     Dosage: 20 MG, UNK
  12. ZOCOR [Concomitant]
     Dosage: 40 MG, OD
  13. DEMADEX [Concomitant]
     Dosage: 10 MG, UNK

REACTIONS (7)
  - Sepsis [Unknown]
  - Pneumonia [Unknown]
  - Systemic inflammatory response syndrome [Unknown]
  - Device related infection [Unknown]
  - Pyrexia [Unknown]
  - Chills [Unknown]
  - White blood cell count increased [Unknown]
